FAERS Safety Report 5456635-0 (Version None)
Quarter: 2007Q3

REPORT INFORMATION
  Report Type: 
  Country: None (occurrence: None)
  Receive Date: 20070918
  Receipt Date: 20070228
  Transmission Date: 20080115
  Serious: Yes (Hospitalization, Other)
  Sender: FDA-Public Use
  Company Number: US-ASTRAZENECA-2006UW25658

PATIENT
  Sex: Male
  Weight: 110 kg

DRUGS (7)
  1. SEROQUEL [Suspect]
     Indication: SCHIZOPHRENIA
     Route: 048
     Dates: start: 20030428
  2. ABILIFY [Suspect]
     Dates: start: 20031201, end: 20040129
  3. CLOZARIL [Suspect]
     Dates: start: 20030201, end: 20040611
  4. GEODON [Concomitant]
     Dates: start: 20010611, end: 20011101
  5. RISPERDAL [Concomitant]
     Dates: start: 20010601, end: 20010801
  6. ZYPREXA [Concomitant]
     Dosage: 10-40 MG
     Dates: start: 20011101, end: 20030301
  7. LEXAPRO [Concomitant]

REACTIONS (4)
  - CONVULSION [None]
  - DIABETES MELLITUS [None]
  - DIABETIC KETOACIDOSIS [None]
  - NEUROLEPTIC MALIGNANT SYNDROME [None]
